FAERS Safety Report 22792679 (Version 3)
Quarter: 2024Q1

REPORT INFORMATION
  Report Type: Report from Study
  Country: US (occurrence: US)
  Receive Date: 20230807
  Receipt Date: 20240216
  Transmission Date: 20240410
  Serious: Yes (Hospitalization)
  Sender: FDA-Public Use
  Company Number: US-CATALYST PHARMACEUTICALS, INC-US-CATA-23-00438

PATIENT
  Sex: Male
  Weight: 81.084 kg

DRUGS (23)
  1. FIRDAPSE [Suspect]
     Active Substance: AMIFAMPRIDINE PHOSPHATE
     Indication: Myasthenic syndrome
     Dosage: 2 TABLETS THREE TIMES A DAY
     Route: 048
     Dates: start: 20190221
  2. FIRDAPSE [Suspect]
     Active Substance: AMIFAMPRIDINE PHOSPHATE
     Dosage: 2 TABLETS FOUR TIMES A DAY (EVERY 6 HOURS)
     Route: 048
     Dates: start: 20230808
  3. MESTINON [Concomitant]
     Active Substance: PYRIDOSTIGMINE BROMIDE
     Indication: Myasthenic syndrome
     Dosage: 60 MG THREE TIMES A DAY
     Route: 065
  4. SPIRIVA [Concomitant]
     Active Substance: TIOTROPIUM BROMIDE MONOHYDRATE
     Indication: Chronic obstructive pulmonary disease
     Dosage: 18 MCG DAILY
     Route: 065
  5. SYMBICORT [Concomitant]
     Active Substance: BUDESONIDE\FORMOTEROL FUMARATE DIHYDRATE
     Indication: Chronic obstructive pulmonary disease
     Dosage: 160/4.5 MCG TWICE DAILY
     Route: 065
  6. ASPIRIN [Concomitant]
     Active Substance: ASPIRIN
     Indication: Thrombosis prophylaxis
     Dosage: 81 MG DAILY
     Route: 065
  7. OMEPRAZOLE [Concomitant]
     Active Substance: OMEPRAZOLE
     Indication: Gastrooesophageal reflux disease
     Dosage: 20 MG DAILY
     Route: 065
  8. LORAZEPAM [Concomitant]
     Active Substance: LORAZEPAM
     Indication: Anxiety
     Dosage: 1 MILLIGRAM, PRN
     Route: 065
  9. GAMUNEX-C [Concomitant]
     Active Substance: HUMAN IMMUNOGLOBULIN G
     Indication: Small cell lung cancer
     Dosage: UNK UNK, 3W
     Route: 065
  10. CENTRUM ADVANCE 50+ ADULTS [Concomitant]
     Indication: Hypovitaminosis
     Dosage: UNK UNK, QD
     Route: 065
  11. MODAFINIL [Concomitant]
     Active Substance: MODAFINIL
     Indication: Depression
     Dosage: 100 MG DAILY
     Route: 065
  12. TESTOSTERONE [Concomitant]
     Active Substance: TESTOSTERONE
     Indication: Androgen deficiency
     Dosage: 1.25 GRAM, QOD
     Route: 062
  13. PREDNISONE [Concomitant]
     Active Substance: PREDNISONE
     Indication: Chronic obstructive pulmonary disease
     Dosage: 10 MILLIGRAM, QD
     Route: 065
  14. ALBUTEROL SULFATE;IPRATROPIUM BROMIDE [Concomitant]
     Indication: Chronic obstructive pulmonary disease
     Dosage: UNK UNK, PRN
     Route: 055
  15. ARICEPT [Concomitant]
     Active Substance: DONEPEZIL HYDROCHLORIDE
     Indication: Amnesia
     Dosage: 10 MILLIGRAM, QD
     Route: 065
  16. ETODOLAC [Concomitant]
     Active Substance: ETODOLAC
     Indication: Ankylosing spondylitis
     Dosage: 500 MILLIGRAM, QD
     Route: 065
  17. VITAMIN D3 [Concomitant]
     Active Substance: CHOLECALCIFEROL
     Indication: Hypovitaminosis
     Dosage: 2000 INTERNATIONAL UNIT, QD
     Route: 065
  18. PROBIOTICS NOS [Concomitant]
     Active Substance: PROBIOTICS NOS
     Indication: Gastrointestinal disorder
     Dosage: 250 MILLIGRAM, QD
     Route: 065
  19. CYCLOBENZAPRINE [Concomitant]
     Active Substance: CYCLOBENZAPRINE
     Indication: Product used for unknown indication
     Dosage: UNKNOWN
     Route: 065
  20. PROCHLORPERAZINE [Concomitant]
     Active Substance: PROCHLORPERAZINE
     Indication: Nausea
     Dosage: 10 MG AS NEEDED
     Route: 065
  21. ZOFRAN [Concomitant]
     Active Substance: ONDANSETRON HYDROCHLORIDE
     Indication: Product used for unknown indication
     Dosage: 4 MG AS NEEDED
     Route: 065
  22. HUMAN IMMUNOGLOBULIN G [Concomitant]
     Active Substance: HUMAN IMMUNOGLOBULIN G
     Indication: Product used for unknown indication
     Dosage: UNKNOWN
     Route: 042
  23. ONDANSETRON [Concomitant]
     Active Substance: ONDANSETRON
     Indication: Nausea
     Dosage: 4 MG AS NEEDED
     Route: 065

REACTIONS (7)
  - Head injury [Recovered/Resolved]
  - Myalgia [Recovered/Resolved]
  - Dizziness [Recovered/Resolved]
  - Fall [Recovered/Resolved]
  - Fall [Unknown]
  - Fall [Not Recovered/Not Resolved]
  - Muscular weakness [Not Recovered/Not Resolved]

NARRATIVE: CASE EVENT DATE: 20230101
